FAERS Safety Report 16058043 (Version 1)
Quarter: 2019Q1

REPORT INFORMATION
  Report Type: Spontaneous
  Country: DE (occurrence: DE)
  Receive Date: 20190311
  Receipt Date: 20190311
  Transmission Date: 20190418
  Serious: Yes (Life-Threatening, Hospitalization)
  Sender: FDA-Public Use
  Company Number: DE-PFIZER INC-2019104542

PATIENT
  Age: 63 Year
  Sex: Male
  Weight: 76 kg

DRUGS (8)
  1. EPHEDRIN [Concomitant]
     Active Substance: EPHEDRINE HYDROCHLORIDE
     Dosage: 15 MG, UNK
     Route: 040
  2. SUFENTANIL [Concomitant]
     Active Substance: SUFENTANIL
     Indication: GENERAL ANAESTHESIA
     Dosage: 50 UG, UNK
     Route: 042
  3. DISOPRIVAN [Concomitant]
     Active Substance: PROPOFOL
     Indication: GENERAL ANAESTHESIA
     Dosage: 170MG + 400 MG/H
     Route: 042
  4. ADRENALIN [Concomitant]
     Active Substance: EPINEPHRINE
     Dosage: 2 MG, UNK
     Route: 040
  5. TRANEXAMIC ACID. [Suspect]
     Active Substance: TRANEXAMIC ACID
     Indication: HAEMORRHAGE
     Dosage: 1000 MG, UNK
  6. NOVAMIN [METAMIZOLE SODIUM] [Concomitant]
     Indication: POSTOPERATIVE ANALGESIA
     Dosage: 1 G, UNK
  7. HEPARIN [Concomitant]
     Active Substance: HEPARIN SODIUM
     Dosage: 5000 IU, UNK
     Route: 040
  8. CEFUROXIM [Concomitant]
     Active Substance: CEFUROXIME
     Dosage: 1.5 G, UNK

REACTIONS (1)
  - Cardio-respiratory arrest [Recovered/Resolved]

NARRATIVE: CASE EVENT DATE: 20180323
